FAERS Safety Report 4897400-2 (Version None)
Quarter: 2006Q1

REPORT INFORMATION
  Report Type: 
  Country: None (occurrence: None)
  Receive Date: 20060201
  Receipt Date: 20060120
  Transmission Date: 20060701
  Serious: Yes (Hospitalization)
  Sender: FDA-Public Use
  Company Number: 2006GB00101

PATIENT
  Age: 59 Year
  Sex: Female

DRUGS (2)
  1. OMEPRAZOLE [Suspect]
     Indication: NAUSEA
     Route: 048
     Dates: start: 20051219, end: 20051231
  2. IBUPROFEN [Concomitant]
     Dosage: OCCASIONAL USE
     Route: 048

REACTIONS (5)
  - FAECES DISCOLOURED [None]
  - HEPATITIS ACUTE [None]
  - JAUNDICE [None]
  - URINE ANALYSIS ABNORMAL [None]
  - WEIGHT DECREASED [None]
